FAERS Safety Report 6731151-4 (Version None)
Quarter: 2010Q2

REPORT INFORMATION
  Report Type: 
  Country: None (occurrence: None)
  Receive Date: 20100518
  Receipt Date: 20100505
  Transmission Date: 20101027
  Serious: Yes (Other)
  Sender: FDA-Public Use
  Company Number: MX-ELI_LILLY_AND_COMPANY-MX201002007241

PATIENT
  Age: 45 Year
  Sex: Male

DRUGS (5)
  1. CYMBALTA [Suspect]
     Indication: DEPRESSION
     Dosage: 60 MG, UNKNOWN
     Route: 065
     Dates: start: 20080101, end: 20091101
  2. TEGRETOL [Concomitant]
     Dosage: 200 MG, UNKNOWN
     Route: 065
  3. ATEMPERATOR /00228505/ [Concomitant]
     Dosage: 600 MG, UNKNOWN
     Route: 065
  4. NEURONTIN [Concomitant]
     Dosage: 300 MG, UNKNOWN
     Route: 065
  5. RIVOTRIL [Concomitant]
     Dosage: 3 MG, UNKNOWN
     Route: 065

REACTIONS (1)
  - BLINDNESS UNILATERAL [None]
